FAERS Safety Report 6020400-6 (Version None)
Quarter: 2008Q4

REPORT INFORMATION
  Report Type: 
  Country: None (occurrence: None)
  Receive Date: 20081226
  Receipt Date: 20081216
  Transmission Date: 20090506
  Serious: Yes (Life-Threatening, Hospitalization)
  Sender: FDA-Public Use
  Company Number: US-EISAI MEDIAL RESEARCH-E3810-02224-SPO-US

PATIENT
  Age: 80 Year
  Sex: Female

DRUGS (7)
  1. ACIPHEX [Suspect]
     Indication: GASTROOESOPHAGEAL REFLUX DISEASE
     Route: 048
  2. XANAX [Concomitant]
     Indication: ANXIETY
  3. ULTRACET [Concomitant]
     Indication: PAIN
  4. LASIX [Concomitant]
     Indication: FLUID RETENTION
  5. AVRAPRO [Concomitant]
     Indication: HYPERTENSION
  6. CLARINEX [Concomitant]
     Indication: HYPERSENSITIVITY
  7. POTASSIUM CHLORIDE [Concomitant]
     Indication: SUPPLEMENTATION THERAPY

REACTIONS (2)
  - OEDEMA PERIPHERAL [None]
  - PULMONARY OEDEMA [None]
